FAERS Safety Report 18928015 (Version 3)
Quarter: 2021Q3

REPORT INFORMATION
  Report Type: Spontaneous
  Country: US (occurrence: US)
  Receive Date: 20210223
  Receipt Date: 20210818
  Transmission Date: 20211014
  Serious: Yes (Other)
  Sender: FDA-Public Use
  Company Number: US-GILEAD-2021-0517985

PATIENT
  Sex: Female
  Weight: 83.92 kg

DRUGS (17)
  1. EPIVIR [Concomitant]
     Active Substance: LAMIVUDINE
  2. TRIUMEQ [Concomitant]
     Active Substance: ABACAVIR SULFATE\DOLUTEGRAVIR SODIUM\LAMIVUDINE
  3. TRUVADA [Suspect]
     Active Substance: EMTRICITABINE\TENOFOVIR DISOPROXIL FUMARATE
     Indication: HIV INFECTION
     Dosage: UNK
     Route: 048
     Dates: start: 2006
  4. RESCRIPTOR [Concomitant]
     Active Substance: DELAVIRDINE MESYLATE
  5. TIVICAY [Concomitant]
     Active Substance: DOLUTEGRAVIR SODIUM
  6. RESCRIPTOR [Concomitant]
     Active Substance: DELAVIRDINE MESYLATE
  7. VIREAD [Suspect]
     Active Substance: TENOFOVIR DISOPROXIL FUMARATE
     Dosage: UNK
     Route: 048
     Dates: start: 2005, end: 2010
  8. COMBIVIR [Concomitant]
     Active Substance: LAMIVUDINE\ZIDOVUDINE
  9. TRUVADA [Suspect]
     Active Substance: EMTRICITABINE\TENOFOVIR DISOPROXIL FUMARATE
     Dosage: UNK
     Route: 048
     Dates: start: 2010, end: 2015
  10. SUSTIVA [Concomitant]
     Active Substance: EFAVIRENZ
  11. ZERIT [Concomitant]
     Active Substance: STAVUDINE
  12. VIDEX [Concomitant]
     Active Substance: DIDANOSINE
  13. NORVIR [Concomitant]
     Active Substance: RITONAVIR
  14. PITAVASTATIN. [Concomitant]
     Active Substance: PITAVASTATIN CALCIUM
  15. VIREAD [Suspect]
     Active Substance: TENOFOVIR DISOPROXIL FUMARATE
     Indication: HIV INFECTION
     Dosage: UNK
     Route: 048
     Dates: start: 2006
  16. EMTRIVA [Concomitant]
     Active Substance: EMTRICITABINE
  17. EPZICOM [Concomitant]
     Active Substance: ABACAVIR SULFATE\LAMIVUDINE

REACTIONS (9)
  - Emotional distress [Not Recovered/Not Resolved]
  - Cough [Unknown]
  - Anhedonia [Not Recovered/Not Resolved]
  - Wrist fracture [Recovered/Resolved]
  - Osteopenia [Not Recovered/Not Resolved]
  - Anxiety [Not Recovered/Not Resolved]
  - Drug resistance [Unknown]
  - Rib fracture [Recovered/Resolved]
  - Pain [Not Recovered/Not Resolved]

NARRATIVE: CASE EVENT DATE: 2015
